FAERS Safety Report 6508032-4 (Version None)
Quarter: 2009Q4

REPORT INFORMATION
  Report Type: 
  Country: None (occurrence: None)
  Receive Date: 20091221
  Receipt Date: 20091215
  Transmission Date: 20100525
  Serious: Yes (Other)
  Sender: FDA-Public Use
  Company Number: BR-ASTRAZENECA-2009SE32168

PATIENT
  Age: 58 Year
  Sex: Female

DRUGS (6)
  1. ARIMIDEX [Suspect]
     Indication: BREAST CANCER
     Route: 048
     Dates: start: 20090301, end: 20090401
  2. LORAX [Concomitant]
  3. LOSARTAN [Concomitant]
  4. APRAZ [Concomitant]
  5. MAREVAN [Concomitant]
  6. CITALOPRAM HYDROBROMIDE [Concomitant]

REACTIONS (2)
  - DIARRHOEA [None]
  - THROMBOSIS [None]
